FAERS Safety Report 7753077-X (Version None)
Quarter: 2011Q3

REPORT INFORMATION
  Report Type: 
  Country: None (occurrence: None)
  Receive Date: 20110915
  Receipt Date: 20110907
  Transmission Date: 20111222
  Serious: Yes (Hospitalization, Other)
  Sender: FDA-Public Use
  Company Number: JP-JNJFOC-20110903466

PATIENT
  Age: 82 Year
  Sex: Male

DRUGS (11)
  1. ASPIRIN [Concomitant]
     Dosage: ONCE A DAY
     Route: 048
  2. TRAMADOL HYDROCHLORIDE AND ACETAMINOPHEN [Suspect]
     Indication: PAIN
     Route: 048
     Dates: start: 20110801
  3. VOLTAREN [Concomitant]
     Route: 065
  4. ALLOPURINOL [Concomitant]
     Dosage: ONCE A DAY
     Route: 048
  5. URALYT-U [Concomitant]
     Route: 048
  6. PLAVIX [Concomitant]
     Dosage: ONCE A DAY
     Route: 048
  7. AMLODIPINE [Concomitant]
     Dosage: ONCE A DAY
     Route: 048
  8. MICARDIS [Concomitant]
     Dosage: ONCE A DAY
     Route: 048
  9. ISOSORBIDE MONONITRATE [Concomitant]
     Dosage: ONCE A DAY
     Route: 048
  10. LANDEL [Concomitant]
     Dosage: ONCE A DAY
     Route: 048
  11. TORSEMIDE [Concomitant]
     Dosage: ONCE A DAY
     Route: 048

REACTIONS (1)
  - CHEST DISCOMFORT [None]
